FAERS Safety Report 5040635-9 (Version None)
Quarter: 2006Q2

REPORT INFORMATION
  Report Type: 
  Country: None (occurrence: None)
  Receive Date: 20060628
  Receipt Date: 20060616
  Transmission Date: 20061013
  Serious: Yes (Death)
  Sender: FDA-Public Use
  Company Number: RS006051-J

PATIENT
  Age: 80 Year
  Sex: Female
  Weight: 52 kg

DRUGS (14)
  1. RABEPRAZOLE SODIUM [Suspect]
     Indication: GASTROINTESTINAL HAEMORRHAGE
     Dosage: 20 MG 1 IN 1 D ORAL
     Route: 048
     Dates: start: 20060420, end: 20060421
  2. PROCYLIN             (BERAPROST SODIUM) [Suspect]
     Indication: ARTERIOSCLEROSIS OBLITERANS
     Dosage: ORAL
     Route: 048
     Dates: start: 20060304, end: 20060418
  3. PROMAC                         (POLAPREZINC) [Concomitant]
  4. GLYBURIDE [Concomitant]
  5. METFORMIN HCL [Concomitant]
  6. NE-SOFT             (TOCOPHEROL) [Concomitant]
  7. NORVASC [Concomitant]
  8. PLATIBIT                       (ALFACALCIDOL) [Concomitant]
  9. PRORENAL                    (LIMAPROST) [Concomitant]
  10. GLUCOBAY [Concomitant]
  11. ASPIRIN [Concomitant]
  12. SAIREI-TO                 (SAIREI-TO) [Concomitant]
  13. CARNACULIN                   (PANCREAS EXTRACT) [Concomitant]
  14. TROXSIN                     (TROXIPIDE) [Concomitant]

REACTIONS (5)
  - FAECES DISCOLOURED [None]
  - HAEMOGLOBIN DECREASED [None]
  - INTERSTITIAL LUNG DISEASE [None]
  - OXYGEN SATURATION DECREASED [None]
  - UPPER GASTROINTESTINAL HAEMORRHAGE [None]
